FAERS Safety Report 8902584 (Version 2)
Quarter: 2012Q4

REPORT INFORMATION
  Report Type: 
  Country: US (occurrence: US)
  Receive Date: 20121112
  Receipt Date: 20121211
  Transmission Date: 20130627
  Serious: Yes (Other)
  Sender: FDA-Public Use
  Company Number: US-PFIZER INC-2012279370

PATIENT
  Age: 41 Year
  Sex: Female
  Weight: 86.17 kg

DRUGS (6)
  1. LYRICA [Suspect]
     Indication: FIBROMYALGIA
     Dosage: 150 mg, 3x/day
     Route: 048
     Dates: end: 201210
  2. LYRICA [Suspect]
     Indication: NEURALGIA
  3. XANAX [Concomitant]
     Dosage: UNK
  4. TOPAMAX [Concomitant]
     Dosage: UNK
  5. DILAUDID [Concomitant]
     Dosage: 4 mg, 4x/day
  6. DURAGESIC [Concomitant]
     Dosage: 50 ug, UNK

REACTIONS (5)
  - Leukaemia [Unknown]
  - Sepsis [Unknown]
  - Blood count abnormal [Unknown]
  - Bedridden [Unknown]
  - Paraesthesia [Unknown]
